FAERS Safety Report 9886426 (Version 2)
Quarter: 2014Q1

REPORT INFORMATION
  Report Type: Spontaneous
  Country: US (occurrence: US)
  Receive Date: 20140210
  Receipt Date: 20140214
  Transmission Date: 20141002
  Serious: No
  Sender: FDA-Public Use
  Company Number: US-PFIZER INC-2014036873

PATIENT
  Age: 42 Year
  Sex: Female

DRUGS (5)
  1. ENBREL [Suspect]
     Dosage: UNK
     Route: 065
  2. XELJANZ [Suspect]
     Dosage: 5 MG, 2X/DAY
     Route: 048
     Dates: start: 20130405, end: 20130530
  3. ETODOLAC [Concomitant]
     Indication: PAIN
     Dosage: 400 MG, BID
  4. LEXAPRO [Concomitant]
     Indication: DEPRESSION
     Dosage: 20 MG, UNK
  5. PREDNISONE [Concomitant]
     Indication: PAIN
     Dosage: 5 MG, BID

REACTIONS (3)
  - Drug ineffective [Unknown]
  - Psoriasis [Recovering/Resolving]
  - Blood glucose increased [Unknown]
